FAERS Safety Report 8206517-6 (Version None)
Quarter: 2012Q1

REPORT INFORMATION
  Report Type: 
  Country: None (occurrence: None)
  Receive Date: 20120313
  Receipt Date: 20120308
  Transmission Date: 20120608
  Serious: Yes (Other)
  Sender: FDA-Public Use
  Company Number: JP-ABBOTT-12P-087-0913159-00

PATIENT
  Sex: Male

DRUGS (2)
  1. HUMIRA [Suspect]
     Indication: PSORIASIS
     Route: 058
     Dates: start: 20111114, end: 20111114
  2. HUMIRA [Suspect]
     Route: 058
     Dates: start: 20111128, end: 20120112

REACTIONS (1)
  - PROSTATE CANCER [None]
